FAERS Safety Report 7146358-4 (Version None)
Quarter: 2010Q4

REPORT INFORMATION
  Report Type: 
  Country: None (occurrence: None)
  Receive Date: 20101208
  Receipt Date: 20091117
  Transmission Date: 20110411
  Serious: No
  Sender: FDA-Public Use
  Company Number: US-BRISTOL-MYERS SQUIBB COMPANY-14806517

PATIENT

DRUGS (3)
  1. PRAVASTATINE TABS [Suspect]
  2. VYTORIN [Suspect]
  3. CRESTOR [Suspect]

REACTIONS (1)
  - DRUG INEFFECTIVE [None]
